FAERS Safety Report 6286055-0 (Version None)
Quarter: 2009Q3

REPORT INFORMATION
  Report Type: 
  Country: None (occurrence: None)
  Receive Date: 20090728
  Receipt Date: 20090722
  Transmission Date: 20100115
  Serious: Yes (Other)
  Sender: FDA-Public Use
  Company Number: CA-ALLERGAN-0901026US

PATIENT
  Age: 36 Year
  Sex: Female

DRUGS (18)
  1. BOTOX [Suspect]
     Indication: MUSCLE SPASTICITY
     Dosage: 700 UNITS, SINGLE
     Route: 030
     Dates: start: 20081125, end: 20081125
  2. BOTOX [Suspect]
     Dosage: 700 UNITS, SINGLE
     Route: 030
     Dates: start: 20080812, end: 20080812
  3. BOTOX [Suspect]
     Dosage: 600 UNITS, SINGLE
     Route: 030
     Dates: start: 20080506, end: 20080506
  4. CELEXA [Concomitant]
     Dosage: 40 MG, UNK
  5. GRAVOL TAB [Concomitant]
     Dosage: 50 MG, 1 TAB IN THE MORNING WHEN NEEDED
  6. CRANBERRY CAPSULES [Concomitant]
     Dosage: 1 DAILY
  7. VALIUM [Concomitant]
     Dosage: 2 MG, BID
  8. NASONEX [Concomitant]
     Indication: HYPERSENSITIVITY
  9. TYLENOL W/ CODEINE [Concomitant]
     Dosage: 1 TO 2 TABLETS AS NEEDED
  10. LORAZEPAM [Concomitant]
     Dosage: 0.5 MG, UNK
  11. PREVACID [Concomitant]
     Dosage: 30 MG, QD
  12. NATURAL TEARS [Concomitant]
  13. VITAMIN D [Concomitant]
     Dosage: 400 MG, UNK
  14. ZOLMITRIPTAN [Concomitant]
     Indication: MIGRAINE
     Dosage: 2.5 MG, UNK
  15. SENOKOT [Concomitant]
     Dosage: TWICE PER WEEK
  16. DITROPAN [Concomitant]
     Dosage: 5 MG, TID
  17. MAGNESIUM HYDROXIDE TAB [Concomitant]
     Dosage: 4 TABS 3 TIMES PER WEEK
  18. BISACODYL [Concomitant]
     Dosage: 10 MG, 3 TIMES PER WEEK

REACTIONS (4)
  - DYSARTHRIA [None]
  - DYSPHAGIA [None]
  - DYSPNOEA [None]
  - MUSCULAR WEAKNESS [None]
